FAERS Safety Report 13986470 (Version 2)
Quarter: 2017Q3

REPORT INFORMATION
  Report Type: Spontaneous
  Country: AU (occurrence: AU)
  Receive Date: 20170919
  Receipt Date: 20170925
  Transmission Date: 20171128
  Serious: Yes (Hospitalization, Other)
  Sender: FDA-Public Use
  Company Number: AU-009507513-1709AUS008175

PATIENT
  Age: 44 Year
  Sex: Male
  Weight: 95 kg

DRUGS (2)
  1. MIRTAZAPINE GA [Suspect]
     Active Substance: MIRTAZAPINE
     Dosage: 60 MG, QPM
     Route: 048
  2. MIRTAZAPINE GA [Suspect]
     Active Substance: MIRTAZAPINE
     Indication: PRODUCT USED FOR UNKNOWN INDICATION
     Dosage: 15 MG, QPM
     Route: 048

REACTIONS (9)
  - Liver function test increased [Recovering/Resolving]
  - Psychotic symptom [Unknown]
  - Acute myocardial infarction [Unknown]
  - Pericardial effusion [Unknown]
  - Blood creatine phosphokinase increased [Unknown]
  - Tremor [Unknown]
  - Non-cardiac chest pain [Unknown]
  - Musculoskeletal chest pain [Unknown]
  - Ventricular hypertrophy [Unknown]

NARRATIVE: CASE EVENT DATE: 2014
